FAERS Safety Report 19643950 (Version 5)
Quarter: 2022Q1

REPORT INFORMATION
  Report Type: Report from Study
  Country: US (occurrence: US)
  Receive Date: 20210731
  Receipt Date: 20220308
  Transmission Date: 20220423
  Serious: Yes (Hospitalization, Other)
  Sender: FDA-Public Use
  Company Number: US-NOVARTISPH-NVSC2021US173347

PATIENT
  Sex: Male

DRUGS (3)
  1. ENTRESTO [Suspect]
     Active Substance: SACUBITRIL\VALSARTAN
     Indication: Product used for unknown indication
     Dosage: 50 MG, UNKNOWN(24/26MG)
     Route: 065
  2. ENTRESTO [Suspect]
     Active Substance: SACUBITRIL\VALSARTAN
     Indication: Cardiac failure chronic
  3. ELIQUIS [Suspect]
     Active Substance: APIXABAN
     Indication: Product used for unknown indication
     Route: 065

REACTIONS (10)
  - Pneumonia [Unknown]
  - Dyspnoea [Unknown]
  - Hyperventilation [Unknown]
  - Loss of consciousness [Unknown]
  - Intracardiac thrombus [Recovered/Resolved]
  - Dyspnoea [Recovered/Resolved]
  - Anxiety [Unknown]
  - Panic attack [Unknown]
  - Hernia [Unknown]
  - Dizziness [Unknown]
